FAERS Safety Report 6802685-9 (Version None)
Quarter: 2010Q2

REPORT INFORMATION
  Report Type: 
  Country: None (occurrence: None)
  Receive Date: 20100628
  Receipt Date: 20100615
  Transmission Date: 20101027
  Serious: Yes (Other)
  Sender: FDA-Public Use
  Company Number: PHHY2010MX39162

PATIENT
  Age: 65 Year
  Sex: Female

DRUGS (3)
  1. ACLASTA [Suspect]
     Indication: OSTEOPOROSIS
     Dosage: 5MG YEARLY ONCE
     Route: 042
     Dates: start: 20100601
  2. ATORVASTATIN [Concomitant]
  3. OMEPRAZOLE [Concomitant]

REACTIONS (3)
  - CONJUNCTIVITIS [None]
  - KERATITIS [None]
  - RHINITIS [None]
